FAERS Safety Report 7242389-4 (Version None)
Quarter: 2011Q1

REPORT INFORMATION
  Report Type: 
  Country: None (occurrence: None)
  Receive Date: 20110125
  Receipt Date: 20110113
  Transmission Date: 20110831
  Serious: Yes (Hospitalization)
  Sender: FDA-Public Use
  Company Number: US-BIOGENIDEC-2011BI000330

PATIENT
  Age: 62 Year
  Sex: Female

DRUGS (13)
  1. CARVEDILOL [Concomitant]
     Indication: HYPERTENSION
     Route: 048
  2. SIMVASTATIN [Concomitant]
     Route: 048
  3. LANSOPRAZOLE [Concomitant]
     Indication: GASTROOESOPHAGEAL REFLUX DISEASE
     Route: 048
  4. OXYBUTYNIN [Concomitant]
     Route: 048
  5. OMNIPRED [Concomitant]
     Route: 031
  6. ISOSORBIDE DINITRATE [Concomitant]
     Route: 048
  7. ACTOS [Concomitant]
     Indication: TYPE 2 DIABETES MELLITUS
     Route: 048
  8. PREMARIN [Concomitant]
     Route: 048
  9. GLIPIZIDE [Concomitant]
     Indication: TYPE 2 DIABETES MELLITUS
     Route: 048
  10. TYSABRI [Suspect]
     Indication: MULTIPLE SCLEROSIS
     Route: 042
     Dates: start: 20101020
  11. NEXIUM [Concomitant]
     Indication: GASTROOESOPHAGEAL REFLUX DISEASE
     Route: 048
     Dates: start: 20101111
  12. LISINOPRIL [Concomitant]
     Indication: HYPERTENSION
     Route: 048
  13. RANEXA [Concomitant]
     Route: 048

REACTIONS (2)
  - MULTIPLE SCLEROSIS RELAPSE [None]
  - ESCHERICHIA URINARY TRACT INFECTION [None]
